FAERS Safety Report 7775374-4 (Version None)
Quarter: 2011Q3

REPORT INFORMATION
  Report Type: 
  Country: None (occurrence: None)
  Receive Date: 20110923
  Receipt Date: 20110914
  Transmission Date: 20111222
  Serious: Yes (Other)
  Sender: FDA-Public Use
  Company Number: PHEH2009US09834

PATIENT
  Sex: Female

DRUGS (3)
  1. MORPHINE [Concomitant]
  2. AREDIA [Suspect]
  3. NEXIUM [Concomitant]

REACTIONS (8)
  - INJURY [None]
  - GINGIVAL BLEEDING [None]
  - OSTEOMYELITIS [None]
  - WEIGHT DECREASED [None]
  - OSTEONECROSIS OF JAW [None]
  - MASTICATION DISORDER [None]
  - EXPOSED BONE IN JAW [None]
  - SENSITIVITY OF TEETH [None]
